FAERS Safety Report 25661280 (Version 1)
Quarter: 2025Q3

REPORT INFORMATION
  Report Type: Spontaneous
  Country: EU (occurrence: EU)
  Receive Date: 20250808
  Receipt Date: 20250808
  Transmission Date: 20251020
  Serious: Yes (Life-Threatening, Hospitalization)
  Sender: MYLAN
  Company Number: None

PATIENT
  Age: 56 Year
  Sex: Male

DRUGS (8)
  1. METHOTREXATE [Suspect]
     Active Substance: METHOTREXATE
     Indication: Psoriatic arthropathy
     Dosage: 15 MILLIGRAM, QW (DOSAGE FORM: UNSPECIFIED, IN EPISODES)
     Dates: start: 20131126, end: 20141120
  2. METHOTREXATE [Suspect]
     Active Substance: METHOTREXATE
     Dosage: 15 MILLIGRAM, QW (DOSAGE FORM: UNSPECIFIED, IN EPISODES)
     Route: 065
     Dates: start: 20131126, end: 20141120
  3. METHOTREXATE [Suspect]
     Active Substance: METHOTREXATE
     Dosage: 15 MILLIGRAM, QW (DOSAGE FORM: UNSPECIFIED, IN EPISODES)
     Route: 065
     Dates: start: 20131126, end: 20141120
  4. METHOTREXATE [Suspect]
     Active Substance: METHOTREXATE
     Dosage: 15 MILLIGRAM, QW (DOSAGE FORM: UNSPECIFIED, IN EPISODES)
     Dates: start: 20131126, end: 20141120
  5. STELARA [Suspect]
     Active Substance: USTEKINUMAB
     Indication: Psoriatic arthropathy
     Dates: start: 20131126, end: 20141120
  6. STELARA [Suspect]
     Active Substance: USTEKINUMAB
     Route: 058
     Dates: start: 20131126, end: 20141120
  7. STELARA [Suspect]
     Active Substance: USTEKINUMAB
     Route: 058
     Dates: start: 20131126, end: 20141120
  8. STELARA [Suspect]
     Active Substance: USTEKINUMAB
     Dates: start: 20131126, end: 20141120

REACTIONS (2)
  - Agranulocytosis [Recovered/Resolved]
  - Infection [Recovered/Resolved]

NARRATIVE: CASE EVENT DATE: 20141120
